FAERS Safety Report 13217668 (Version 1)
Quarter: 2017Q1

REPORT INFORMATION
  Report Type: Other
  Country: US (occurrence: US)
  Receive Date: 20170210
  Receipt Date: 20170210
  Transmission Date: 20170428
  Serious: No
  Sender: FDA-Public Use
  Company Number: US-ACORDA-ACO_121142_2016

PATIENT
  Age: 60 Year
  Sex: Female
  Weight: 83.45 kg

DRUGS (1)
  1. AMPYRA [Suspect]
     Active Substance: DALFAMPRIDINE
     Indication: GAIT DISTURBANCE
     Dosage: 10 MG, BID
     Route: 048
     Dates: start: 20160118, end: 20160129

REACTIONS (6)
  - Sensory disturbance [Recovered/Resolved]
  - Condition aggravated [Not Recovered/Not Resolved]
  - Insomnia [Recovering/Resolving]
  - Dry mouth [Recovered/Resolved]
  - Pain in extremity [Recovered/Resolved]
  - Balance disorder [Recovered/Resolved]

NARRATIVE: CASE EVENT DATE: 20160121
